FAERS Safety Report 6933871-5 (Version None)
Quarter: 2010Q3

REPORT INFORMATION
  Report Type: 
  Country: None (occurrence: None)
  Receive Date: 20100820
  Receipt Date: 20100812
  Transmission Date: 20110219
  Serious: Yes (Hospitalization, Disabling, Other)
  Sender: FDA-Public Use
  Company Number: US-ROCHE-412370

PATIENT
  Sex: Female
  Weight: 68 kg

DRUGS (6)
  1. ACCUTANE [Suspect]
     Indication: ACNE
     Route: 048
     Dates: start: 19990517
  2. ACCUTANE [Suspect]
     Route: 048
     Dates: start: 19990714, end: 19990901
  3. ACCUTANE [Suspect]
     Route: 048
     Dates: start: 19991115, end: 20000223
  4. IBUPROFEN [Concomitant]
  5. PREDNISONE [Concomitant]
     Dosage: DOSAGE REGIMEN REPORTED AS DAILY.
     Route: 048
  6. COUMADIN [Concomitant]
     Indication: PULMONARY EMBOLISM
     Dosage: DOSAGE REGIMEN REPORTED AS DAILY.
     Route: 048

REACTIONS (24)
  - ABDOMINAL COMPARTMENT SYNDROME [None]
  - ABDOMINAL SEPSIS [None]
  - ANAL FISSURE [None]
  - COLITIS [None]
  - COLITIS ULCERATIVE [None]
  - DEPRESSION [None]
  - GASTROINTESTINAL DISORDER [None]
  - HAEMORRHAGIC ANAEMIA [None]
  - HAEMORRHOIDS [None]
  - INFLAMMATORY BOWEL DISEASE [None]
  - INTERSTITIAL LUNG DISEASE [None]
  - INTESTINAL HAEMORRHAGE [None]
  - IRON DEFICIENCY ANAEMIA [None]
  - IRRITABLE BOWEL SYNDROME [None]
  - LUNG NEOPLASM [None]
  - MALNUTRITION [None]
  - MICROCYTIC ANAEMIA [None]
  - MULTI-ORGAN DISORDER [None]
  - PAIN [None]
  - PERITONITIS [None]
  - PNEUMONITIS [None]
  - PULMONARY EMBOLISM [None]
  - SMALL INTESTINAL OBSTRUCTION [None]
  - THROMBOCYTOSIS [None]
